FAERS Safety Report 7683131 (Version 14)
Quarter: 2015Q2

REPORT INFORMATION
  Report Type: Report from Study
  Country: US (occurrence: US)
  Receive Date: 20101125
  Receipt Date: 20150619
  Transmission Date: 20150821
  Serious: Yes (Hospitalization)
  Sender: FDA-Public Use
  Company Number: US-BIOGENIDEC-2010BI040461

PATIENT
  Age: 55 Year
  Sex: Female
  Weight: 99 kg

DRUGS (23)
  1. DULCOLAX [Concomitant]
     Active Substance: BISACODYL OR DOCUSATE SODIUM
     Route: 054
  2. HYZAAR [Concomitant]
     Active Substance: HYDROCHLOROTHIAZIDE\LOSARTAN POTASSIUM
  3. FLEXOR PAIN PATCH [Concomitant]
  4. DETROL LA [Concomitant]
     Active Substance: TOLTERODINE TARTRATE
  5. PEPTO-BISMOL [Concomitant]
     Active Substance: BISMUTH SUBSALICYLATE\CALCIUM CARBONATE
  6. MUCINEX [Concomitant]
     Active Substance: GUAIFENESIN
  7. VIVELLE [Concomitant]
     Active Substance: ESTRADIOL
  8. VITAMIN D [Concomitant]
     Active Substance: CHOLECALCIFEROL
  9. NAPROSYN [Concomitant]
     Active Substance: NAPROXEN
  10. MOTRIN [Concomitant]
     Active Substance: IBUPROFEN
  11. BENADRYL [Concomitant]
     Active Substance: DIPHENHYDRAMINE HYDROCHLORIDE
     Indication: NAUSEA
     Route: 042
  12. BENADRYL [Concomitant]
     Active Substance: DIPHENHYDRAMINE HYDROCHLORIDE
     Indication: VOMITING
     Route: 042
  13. AMBIEN [Concomitant]
     Active Substance: ZOLPIDEM TARTRATE
  14. SCOPOLAMINE PATCH [Concomitant]
     Active Substance: SCOPOLAMINE
  15. DRAMAMINE [Concomitant]
     Active Substance: DIMENHYDRINATE
  16. DARVOCET [Concomitant]
     Active Substance: ACETAMINOPHEN\PROPOXYPHENE HYDROCHLORIDE
  17. SEREVENT INHALER [Concomitant]
  18. CORRECTOL NOS [Concomitant]
     Active Substance: BISACODYL OR DOCUSATE SODIUM
  19. TYSABRI [Suspect]
     Active Substance: NATALIZUMAB
     Indication: MULTIPLE SCLEROSIS
     Route: 042
     Dates: start: 20101026, end: 20101026
  20. PROTONIX [Concomitant]
     Active Substance: PANTOPRAZOLE SODIUM
  21. CLARITIN [Concomitant]
     Active Substance: LORATADINE
  22. VITAMIN B12 [Concomitant]
     Active Substance: CYANOCOBALAMIN
  23. LASIX [Concomitant]
     Active Substance: FUROSEMIDE

REACTIONS (18)
  - Deafness unilateral [Not Recovered/Not Resolved]
  - Diarrhoea [Not Recovered/Not Resolved]
  - Multiple sclerosis relapse [Unknown]
  - Intestinal obstruction [Recovered/Resolved]
  - Herpes zoster [Recovered/Resolved]
  - Poor venous access [Recovered/Resolved]
  - Mobility decreased [Not Recovered/Not Resolved]
  - Hyperacusis [Not Recovered/Not Resolved]
  - Dysuria [Recovered/Resolved]
  - Foot fracture [Recovered/Resolved]
  - Cartilage injury [Recovered/Resolved]
  - Hypoaesthesia [Not Recovered/Not Resolved]
  - Post herpetic neuralgia [Not Recovered/Not Resolved]
  - Bladder disorder [Not Recovered/Not Resolved]
  - Blood pressure abnormal [Not Recovered/Not Resolved]
  - Stress [Recovered/Resolved]
  - Fatigue [Recovered/Resolved]
  - Dizziness [Not Recovered/Not Resolved]

NARRATIVE: CASE EVENT DATE: 2010
